FAERS Safety Report 7225423-7 (Version None)
Quarter: 2011Q1

REPORT INFORMATION
  Report Type: 
  Country: None (occurrence: None)
  Receive Date: 20110113
  Receipt Date: 20110105
  Transmission Date: 20110831
  Serious: Yes (Hospitalization)
  Sender: FDA-Public Use
  Company Number: US-US-EMD SERONO, INC.-7011720

PATIENT
  Sex: Female

DRUGS (1)
  1. REBIF [Suspect]
     Indication: MULTIPLE SCLEROSIS
     Route: 058
     Dates: start: 20100706, end: 20101216

REACTIONS (9)
  - COMA [None]
  - DEPRESSION [None]
  - INTENTIONAL OVERDOSE [None]
  - FALL [None]
  - SUICIDE ATTEMPT [None]
  - MULTIPLE SCLEROSIS RELAPSE [None]
  - BLOOD GLUCOSE ABNORMAL [None]
  - HEAD INJURY [None]
  - STRESS [None]
